FAERS Safety Report 7217666-3 (Version None)
Quarter: 2011Q1

REPORT INFORMATION
  Report Type: 
  Country: None (occurrence: None)
  Receive Date: 20110110
  Receipt Date: 20110105
  Transmission Date: 20110831
  Serious: Yes (Other)
  Sender: FDA-Public Use
  Company Number: CA-ROCHE-751749

PATIENT
  Sex: Female
  Weight: 111 kg

DRUGS (10)
  1. OMEGA 3 PLUS [Concomitant]
     Dosage: DRUG REPORTED: OMEGA 3
  2. CALCIUM [Concomitant]
  3. TOCILIZUMAB [Suspect]
     Indication: RHEUMATOID ARTHRITIS
     Route: 042
     Dates: start: 20101208
  4. DICLOFENAC [Concomitant]
  5. CARDIZEM [Concomitant]
  6. CIPRALEX [Concomitant]
  7. ARAVA [Concomitant]
  8. AVAPRO [Concomitant]
  9. PANTOLOC [Concomitant]
  10. CLONAZEPAM [Concomitant]

REACTIONS (1)
  - PAROTID GLAND ENLARGEMENT [None]
